FAERS Safety Report 5072392-4 (Version None)
Quarter: 2006Q3

REPORT INFORMATION
  Report Type: 
  Country: None (occurrence: None)
  Receive Date: 20060710
  Receipt Date: 20050810
  Transmission Date: 20061208
  Serious: Yes (Other)
  Sender: FDA-Public Use
  Company Number: PROG00205002573

PATIENT
  Sex: Female

DRUGS (2)
  1. PROMETRIUM [Suspect]
     Indication: PRENATAL CARE
     Dosage: SEE IMAGE
     Route: 048
     Dates: start: 20040927, end: 20040929
  2. PROMETRIUM [Suspect]
     Indication: PRENATAL CARE
     Dosage: SEE IMAGE
     Route: 048
     Dates: start: 20050809

REACTIONS (1)
  - ABORTION SPONTANEOUS [None]
